FAERS Safety Report 10405221 (Version 2)
Quarter: 2014Q3

REPORT INFORMATION
  Report Type: Report from Study
  Country: US (occurrence: US)
  Receive Date: 20140825
  Receipt Date: 20140825
  Transmission Date: 20150326
  Serious: Yes (Death)
  Sender: FDA-Public Use
  Company Number: PHEH2014US008464

PATIENT
  Sex: Male

DRUGS (1)
  1. EXJADE [Suspect]
     Active Substance: DEFERASIROX
     Indication: MAGNESIUM METABOLISM DISORDER
     Dosage: 1000 MG, ONCE DAILY (DISPERSE TWO TABLETS)
     Route: 048

REACTIONS (1)
  - Death [Fatal]
